FAERS Safety Report 23667734 (Version 2)
Quarter: 2024Q2

REPORT INFORMATION
  Report Type: Spontaneous
  Country: ES (occurrence: ES)
  Receive Date: 20240325
  Receipt Date: 20240403
  Transmission Date: 20240715
  Serious: Yes (Hospitalization, Other)
  Sender: FDA-Public Use
  Company Number: None

PATIENT
  Age: 60 Year
  Sex: Female

DRUGS (3)
  1. TENOFOVIR ALAFENAMIDE [Suspect]
     Active Substance: TENOFOVIR ALAFENAMIDE
     Indication: HIV infection
     Dosage: 25.0 MG Q24H
     Route: 048
     Dates: start: 20230823, end: 20230912
  2. VENTOLIN [Concomitant]
     Active Substance: ALBUTEROL SULFATE
     Indication: Asthma
     Dosage: 200.0 MCG C/8 HORAS
     Route: 065
     Dates: start: 20181205
  3. ANASMA [SALBUTAMOL SULFATE] [Concomitant]
     Indication: Asthma
     Dosage: 2.0 PUFF C/12 H
     Route: 065
     Dates: start: 20151014

REACTIONS (1)
  - Tubulointerstitial nephritis [Recovered/Resolved]

NARRATIVE: CASE EVENT DATE: 20230912
